FAERS Safety Report 9270455 (Version 2)
Quarter: 2013Q2

REPORT INFORMATION
  Report Type: Report from Study
  Country: US (occurrence: US)
  Receive Date: 20130503
  Receipt Date: 20130628
  Transmission Date: 20140414
  Serious: Yes (Death)
  Sender: FDA-Public Use
  Company Number: US-ABBOTT-13P-163-1084790-00

PATIENT
  Age: 60 Year
  Sex: Female
  Weight: 65.83 kg

DRUGS (5)
  1. HUMIRA [Suspect]
     Indication: CROHN^S DISEASE
     Dates: start: 201301, end: 201301
  2. HUMIRA [Suspect]
     Dates: start: 201301, end: 201301
  3. HUMIRA [Suspect]
     Dates: start: 201302, end: 20130409
  4. UNKNOWN MEDICATIONS [Concomitant]
     Indication: PRODUCT USED FOR UNKNOWN INDICATION
  5. POTASSIUM [Concomitant]
     Indication: HYPOKALAEMIA

REACTIONS (4)
  - Ventricular fibrillation [Fatal]
  - Coma [Fatal]
  - Cardiac arrest [Not Recovered/Not Resolved]
  - Fatigue [Not Recovered/Not Resolved]
